FAERS Safety Report 14393422 (Version 1)
Quarter: 2018Q1

REPORT INFORMATION
  Report Type: Spontaneous
  Country: US (occurrence: US)
  Receive Date: 20180116
  Receipt Date: 20180116
  Transmission Date: 20180509
  Serious: Yes (Hospitalization)
  Sender: FDA-Public Use
  Company Number: US-MYLANLABS-2018M1000765

PATIENT
  Sex: Female

DRUGS (1)
  1. ATENOLOL. [Suspect]
     Active Substance: ATENOLOL
     Indication: HYPERTENSION
     Dosage: 50 MG, BID

REACTIONS (6)
  - Loss of consciousness [Unknown]
  - Weight decreased [Unknown]
  - Arrhythmia [Unknown]
  - Heart rate increased [Unknown]
  - Drug ineffective [Unknown]
  - Dizziness [Unknown]
